FAERS Safety Report 16899334 (Version 1)
Quarter: 2019Q4

REPORT INFORMATION
  Report Type: Spontaneous
  Country: GB (occurrence: GB)
  Receive Date: 20191009
  Receipt Date: 20191009
  Transmission Date: 20200122
  Serious: Yes (Other)
  Sender: FDA-Public Use
  Company Number: GB-MYLANLABS-2019M1094076

PATIENT
  Age: 69 Year
  Sex: Female
  Weight: 62 kg

DRUGS (13)
  1. DOXYCYCLINE. [Concomitant]
     Active Substance: DOXYCYCLINE
     Dosage: TAKE TWO NOW THEN TAKE ONE DAILY
     Dates: start: 20190429, end: 20190506
  2. MUCOGEL                            /00082501/ [Concomitant]
     Dosage: 2-4 5ML SPOONFULS 3 TIMES DAILY WHEN REQUIRED
     Dates: start: 20181120
  3. PREDNISOLONE. [Concomitant]
     Active Substance: PREDNISOLONE
     Dosage: 8 DOSAGE FORM, QD, FOR 5 DAYS
     Dates: start: 20180406
  4. PEPPERMINT OIL [Concomitant]
     Active Substance: PEPPERMINT OIL
     Dosage: 3 DOSAGE FORM, QD
     Dates: start: 20190524
  5. BRALTUS [Concomitant]
     Active Substance: TIOTROPIUM BROMIDE
     Dosage: 1 DOSAGE FORM, QD,CONTENTS OF ONE CAPSULE ONCE DAILY
     Dates: start: 20180927
  6. KLIOVANCE [Concomitant]
     Active Substance: ESTRADIOL\NORETHINDRONE ACETATE
     Dosage: 1 DOSAGE FORM
     Dates: start: 20180406
  7. RELVAR ELLIPTA                     /08236201/ [Concomitant]
     Active Substance: FLUTICASONE FUROATE\VILANTEROL TRIFENATATE
     Dosage: 2 DOSAGE FORM, QD, PUFF
     Dates: start: 20180927
  8. SALBUTAMOL [Concomitant]
     Active Substance: ALBUTEROL
     Dosage: 3-4 TIMES/DAY
     Route: 055
     Dates: start: 20180406
  9. FENOFIBRATE. [Concomitant]
     Active Substance: FENOFIBRATE
     Dosage: 3 DOSAGE FORM, QD
     Dates: start: 20180406
  10. LANSOPRAZOLE. [Concomitant]
     Active Substance: LANSOPRAZOLE
     Indication: LOWER RESPIRATORY TRACT INFECTION
     Dosage: 2 DOSAGE FORM, QD
     Dates: start: 20190114
  11. LEVOFLOXACIN. [Suspect]
     Active Substance: LEVOFLOXACIN
     Indication: LOWER RESPIRATORY TRACT INFECTION
     Dosage: 1000 MILLIGRAM, QD
     Route: 048
     Dates: start: 20190424, end: 20190426
  12. NYSTAN [Concomitant]
     Active Substance: NYSTATIN
     Dosage: AS DIRECTED
     Dates: start: 20190305
  13. MONTELUKAST [Concomitant]
     Active Substance: MONTELUKAST SODIUM
     Dosage: 1 DOSAGE FORM, QD, NIGHT
     Dates: start: 20181120

REACTIONS (2)
  - Tendon pain [Not Recovered/Not Resolved]
  - Pain in extremity [Not Recovered/Not Resolved]

NARRATIVE: CASE EVENT DATE: 20190424
